FAERS Safety Report 8437095-4 (Version None)
Quarter: 2012Q2

REPORT INFORMATION
  Report Type: 
  Country: None (occurrence: None)
  Receive Date: 20120614
  Receipt Date: 20120430
  Transmission Date: 20120825
  Serious: No
  Sender: FDA-Public Use
  Company Number: US-AMGEN-USASP2012014023

PATIENT
  Age: 74 Year
  Sex: Female
  Weight: 63 kg

DRUGS (9)
  1. TRILEPTAL [Concomitant]
     Indication: TRIGEMINAL NEURALGIA
     Dosage: 6000 MG, QD
     Route: 048
  2. WOMEN'S MULTI [Concomitant]
     Dosage: UNK UNK, QD
     Route: 048
  3. CALCIUM WITH VITAMIN D3 [Concomitant]
     Dosage: UNK MG, UNK
  4. VITAMIN D [Concomitant]
     Dosage: 1000 IU, UNK
     Route: 048
  5. FLECAINIDE ACETATE [Concomitant]
     Dosage: 3 MG, QD
  6. EVISTA [Concomitant]
     Dosage: 1 MG, QD
  7. SIMVASTATIN [Concomitant]
     Indication: HYPERCHOLESTEROLAEMIA
     Dosage: 40 G, QD
     Route: 048
  8. PROLIA [Suspect]
     Indication: OSTEOPOROSIS POSTMENOPAUSAL
     Dosage: 60 MG, Q6MO
     Route: 058
     Dates: start: 20120131
  9. AMLODIPINE [Concomitant]
     Indication: HYPERTENSION
     Dosage: 5 MG, QD
     Route: 048

REACTIONS (1)
  - CHROMATURIA [None]
